FAERS Safety Report 8531354-2 (Version None)
Quarter: 2012Q3

REPORT INFORMATION
  Report Type: 
  Country: None (occurrence: None)
  Receive Date: 20120723
  Receipt Date: 20120711
  Transmission Date: 20120928
  Serious: Yes (Hospitalization)
  Sender: FDA-Public Use
  Company Number: US-ACTELION-A-NJ2012-68757

PATIENT

DRUGS (2)
  1. EPOPROSTENOL SODIUM [Suspect]
     Indication: PULMONARY ARTERIAL HYPERTENSION
     Dosage: 29 NG/KG, PER MIN
     Route: 041
     Dates: start: 20101006
  2. COUMADIN [Concomitant]

REACTIONS (3)
  - SINUSITIS [None]
  - DEVICE RELATED INFECTION [None]
  - URINARY TRACT INFECTION [None]
